FAERS Safety Report 16698837 (Version 6)
Quarter: 2021Q4

REPORT INFORMATION
  Report Type: Spontaneous
  Country: US (occurrence: US)
  Receive Date: 20190813
  Receipt Date: 20211129
  Transmission Date: 20220303
  Serious: Yes (Other)
  Sender: FDA-Public Use
  Company Number: US-PFIZER INC-2019343994

PATIENT
  Age: 71 Year
  Sex: Male
  Weight: 113 kg

DRUGS (3)
  1. XELJANZ XR [Suspect]
     Active Substance: TOFACITINIB CITRATE
     Indication: Rheumatoid arthritis
     Dosage: 11 MG, 1X/DAY
     Route: 048
     Dates: start: 201901
  2. XELJANZ XR [Suspect]
     Active Substance: TOFACITINIB CITRATE
     Dosage: UNK
     Dates: end: 20190806
  3. XELJANZ XR [Suspect]
     Active Substance: TOFACITINIB CITRATE
     Dosage: 11 MG, 1X/DAY (EVERY DAY AT BEDTIME (QHS))
     Route: 048

REACTIONS (8)
  - Arthritis [Not Recovered/Not Resolved]
  - Therapeutic product effect incomplete [Unknown]
  - Pain [Unknown]
  - Musculoskeletal stiffness [Unknown]
  - Swelling [Unknown]
  - Fatigue [Unknown]
  - Joint swelling [Unknown]
  - Sensitivity to weather change [Unknown]
